FAERS Safety Report 17416612 (Version 3)
Quarter: 2020Q2

REPORT INFORMATION
  Report Type: Spontaneous
  Country: US (occurrence: US)
  Receive Date: 20200214
  Receipt Date: 20200414
  Transmission Date: 20200713
  Serious: Yes (Hospitalization, Other)
  Sender: FDA-Public Use
  Company Number: US-ASTRAZENECA-2020SE20521

PATIENT
  Age: 68 Year
  Sex: Male
  Weight: 116.1 kg

DRUGS (4)
  1. NEXIUM [Suspect]
     Active Substance: ESOMEPRAZOLE MAGNESIUM
     Indication: GASTROOESOPHAGEAL REFLUX DISEASE
     Route: 048
     Dates: end: 20200304
  2. NEXIUM [Suspect]
     Active Substance: ESOMEPRAZOLE MAGNESIUM
     Indication: GASTROOESOPHAGEAL REFLUX DISEASE
     Dosage: TWO TIMES A DAY
     Route: 048
  3. NEXIUM [Suspect]
     Active Substance: ESOMEPRAZOLE MAGNESIUM
     Indication: GASTROOESOPHAGEAL REFLUX DISEASE
     Route: 048
     Dates: start: 20200320, end: 20200321
  4. ELIQUIS [Concomitant]
     Active Substance: APIXABAN
     Indication: ATRIAL FIBRILLATION
     Route: 048

REACTIONS (23)
  - Arthropod sting [Unknown]
  - Hypoaesthesia [Unknown]
  - Pain [Unknown]
  - Gastrointestinal disorder [Unknown]
  - Skin disorder [Recovered/Resolved]
  - Product dose omission [Unknown]
  - Drug ineffective [Unknown]
  - Prostate infection [Unknown]
  - Lack of satiety [Unknown]
  - Intentional product use issue [Unknown]
  - Eating disorder [Unknown]
  - Discomfort [Unknown]
  - Fear of eating [Unknown]
  - Laboratory test abnormal [Unknown]
  - Gastrooesophageal reflux disease [Unknown]
  - Nail disorder [Unknown]
  - Movement disorder [Unknown]
  - Ill-defined disorder [Unknown]
  - Thermal burn [Unknown]
  - Blood cholesterol increased [Unknown]
  - Fear-related avoidance of activities [Unknown]
  - Gastrointestinal motility disorder [Unknown]
  - Hair disorder [Unknown]

NARRATIVE: CASE EVENT DATE: 2010
